FAERS Safety Report 9693395 (Version 2)
Quarter: 2013Q4

REPORT INFORMATION
  Report Type: Spontaneous
  Country: US (occurrence: US)
  Receive Date: 20131118
  Receipt Date: 20131125
  Transmission Date: 20140711
  Serious: Yes (Hospitalization)
  Sender: FDA-Public Use
  Company Number: US-GILEAD-2013-0087793

PATIENT
  Sex: Male

DRUGS (3)
  1. LETAIRIS [Suspect]
     Indication: PULMONARY HYPERTENSION
     Dosage: 5 MG, QD
     Dates: start: 20131030
  2. LETAIRIS [Suspect]
     Indication: SICKLE CELL ANAEMIA
  3. LETAIRIS [Suspect]
     Indication: PULMONARY EMBOLISM

REACTIONS (1)
  - Infection [Unknown]
